FAERS Safety Report 11632848 (Version 1)
Quarter: 2015Q4

REPORT INFORMATION
  Report Type: Spontaneous
  Country: US (occurrence: US)
  Receive Date: 20151015
  Receipt Date: 20151015
  Transmission Date: 20160304
  Serious: Yes (Death)
  Sender: FDA-Public Use
  Company Number: CHPA2015US012120

PATIENT
  Sex: Male

DRUGS (1)
  1. 4 WAY FAST ACTING [Suspect]
     Active Substance: PHENYLEPHRINE HYDROCHLORIDE
     Indication: PRODUCT USED FOR UNKNOWN INDICATION
     Dosage: UNK
     Route: 045

REACTIONS (5)
  - Weight decreased [Unknown]
  - Stomach mass [Unknown]
  - Dysphagia [Unknown]
  - Prostate cancer [Fatal]
  - Colon cancer [Fatal]
